FAERS Safety Report 25226327 (Version 2)
Quarter: 2025Q2

REPORT INFORMATION
  Report Type: Spontaneous
  Country: IN (occurrence: IN)
  Receive Date: 20250422
  Receipt Date: 20250507
  Transmission Date: 20250717
  Serious: Yes (Other)
  Sender: SANDOZ
  Company Number: IN-002147023-NVSC2025IN064755

PATIENT
  Sex: Male
  Weight: 62.9 kg

DRUGS (3)
  1. CERTICAN [Suspect]
     Active Substance: EVEROLIMUS
     Indication: Liver transplant
     Dosage: 1 MG, BID
     Route: 048
  2. MYFORTIC [Suspect]
     Active Substance: MYCOPHENOLATE SODIUM
     Indication: Liver transplant
     Dosage: 360 MG, TID
     Route: 048
  3. TACROLIMUS [Suspect]
     Active Substance: TACROLIMUS
     Indication: Liver transplant
     Route: 048

REACTIONS (7)
  - Erectile dysfunction [Unknown]
  - Transplant rejection [Unknown]
  - Blood creatine abnormal [Unknown]
  - Protein total decreased [Unknown]
  - Gingival bleeding [Unknown]
  - Mouth haemorrhage [Unknown]
  - Product prescribing error [Unknown]
